FAERS Safety Report 23036602 (Version 2)
Quarter: 2024Q1

REPORT INFORMATION
  Report Type: Spontaneous
  Country: US (occurrence: US)
  Receive Date: 20231006
  Receipt Date: 20240214
  Transmission Date: 20240409
  Serious: No
  Sender: FDA-Public Use
  Company Number: US-TOLMAR, INC.-23US043708

PATIENT
  Age: 83 Year
  Sex: Male

DRUGS (5)
  1. KETOCONAZOLE [Suspect]
     Active Substance: KETOCONAZOLE
     Indication: Skin disorder
     Dosage: UNK
     Route: 003
     Dates: start: 20230817
  2. VITAMINS NOS [Concomitant]
     Active Substance: VITAMINS
     Indication: Product used for unknown indication
  3. GARLIC [Concomitant]
     Active Substance: GARLIC
     Indication: Product used for unknown indication
  4. ACIDOPHILUS [Concomitant]
     Active Substance: LACTOBACILLUS ACIDOPHILUS
     Indication: Product used for unknown indication
  5. WITCH HAZEL [HAMAMELIS SPP.] [Concomitant]
     Indication: Skin disorder

REACTIONS (2)
  - Off label use [Not Recovered/Not Resolved]
  - Hair texture abnormal [Not Recovered/Not Resolved]
